FAERS Safety Report 4894167-9 (Version None)
Quarter: 2005Q4

REPORT INFORMATION
  Report Type: 
  Country: None (occurrence: None)
  Receive Date: 20051223
  Receipt Date: 20051019
  Transmission Date: 20060501
  Serious: No
  Sender: FDA-Public Use
  Company Number: 2005PV003378

PATIENT
  Age: 73 Year
  Sex: Female
  Weight: 95.2554 kg

DRUGS (7)
  1. SYMLIN [Suspect]
     Indication: DIABETES MELLITUS NON-INSULIN-DEPENDENT
     Dosage: 120 MCG; BID; SC
     Route: 058
     Dates: start: 20050901
  2. HUMALOG [Concomitant]
  3. NPH INSULIN [Concomitant]
  4. GLUCOPHAGE [Concomitant]
  5. ASPIRIN [Concomitant]
  6. CARDIZEM CD [Concomitant]
  7. ZESTRIL [Concomitant]

REACTIONS (5)
  - BLOOD GLUCOSE DECREASED [None]
  - DIARRHOEA [None]
  - EYELID OEDEMA [None]
  - FATIGUE [None]
  - LACRIMATION INCREASED [None]
